FAERS Safety Report 23723194 (Version 1)
Quarter: 2024Q2

REPORT INFORMATION
  Report Type: Spontaneous
  Country: US (occurrence: US)
  Receive Date: 20240409
  Receipt Date: 20240409
  Transmission Date: 20240716
  Serious: No
  Sender: FDA-Public Use
  Company Number: US-JNJFOC-20240414466

PATIENT
  Age: 50 Year
  Sex: Male

DRUGS (3)
  1. SYMTUZA [Interacting]
     Active Substance: COBICISTAT\DARUNAVIR\EMTRICITABINE\TENOFOVIR ALAFENAMIDE
     Indication: Product used for unknown indication
     Route: 048
  2. DUPIXENT [Interacting]
     Active Substance: DUPILUMAB
     Indication: Product used for unknown indication
     Dosage: LOADING DOSE
     Route: 058
  3. DUPIXENT [Interacting]
     Active Substance: DUPILUMAB
     Route: 058

REACTIONS (3)
  - Drug interaction [Unknown]
  - Eczema [Unknown]
  - Laboratory test abnormal [Recovering/Resolving]

NARRATIVE: CASE EVENT DATE: 20231001
